FAERS Safety Report 15131479 (Version 2)
Quarter: 2018Q3

REPORT INFORMATION
  Report Type: Spontaneous
  Country: FR (occurrence: FR)
  Receive Date: 20180711
  Receipt Date: 20180724
  Transmission Date: 20181010
  Serious: Yes (Death, Other)
  Sender: FDA-Public Use
  Company Number: FR-TAKEDA-2017TUS024698

PATIENT
  Age: 80 Year
  Sex: Male

DRUGS (28)
  1. CEFTRIAXONE. [Suspect]
     Active Substance: CEFTRIAXONE
     Indication: ACUTE MYELOID LEUKAEMIA
     Dosage: 2 G, QD
     Route: 042
     Dates: start: 20171016, end: 20171025
  2. LASILIX                            /00032601/ [Suspect]
     Active Substance: FUROSEMIDE
     Indication: HYPERTENSION
     Dosage: 40 MG, QD
     Route: 048
     Dates: start: 20171019, end: 20171021
  3. MOVICOL                            /08437601/ [Concomitant]
     Indication: PRODUCT USED FOR UNKNOWN INDICATION
     Dosage: UNK
     Route: 065
  4. POLYETHYLENE GLYCOL 3350. [Concomitant]
     Active Substance: POLYETHYLENE GLYCOL 3350
     Indication: PRODUCT USED FOR UNKNOWN INDICATION
     Dosage: UNK
     Route: 065
  5. ZYLORIC [Suspect]
     Active Substance: ALLOPURINOL
     Dosage: 100 MG, QD
     Route: 048
     Dates: start: 20171029, end: 20171029
  6. BISOCE [Suspect]
     Active Substance: BISOPROLOL
     Indication: TACHYCARDIA
     Dosage: 5 MG, QD
     Route: 048
     Dates: start: 20171015, end: 20171029
  7. SPASFON                            /00934601/ [Concomitant]
     Active Substance: PHLOROGLUCINOL
     Indication: PRODUCT USED FOR UNKNOWN INDICATION
     Dosage: 80 MG, UNK
     Route: 065
  8. TOPALGIC                           /00599202/ [Concomitant]
     Active Substance: TRAMADOL HYDROCHLORIDE
     Indication: PRODUCT USED FOR UNKNOWN INDICATION
     Dosage: 50 MG, UNK
     Route: 065
     Dates: end: 20171025
  9. ZYLORIC [Suspect]
     Active Substance: ALLOPURINOL
     Dosage: 100 MG, QD
     Route: 048
     Dates: start: 20171027, end: 20171027
  10. LASILIX                            /00032601/ [Suspect]
     Active Substance: FUROSEMIDE
     Dosage: 20 MG, QD
     Route: 048
     Dates: start: 20171022, end: 20171025
  11. HYDROCORTISONE. [Suspect]
     Active Substance: HYDROCORTISONE
     Indication: ACUTE MYELOID LEUKAEMIA
     Dosage: 100 MG, QD
     Route: 042
     Dates: start: 20171020, end: 20171027
  12. CORTANCYL [Concomitant]
     Active Substance: PREDNISONE
     Indication: PRODUCT USED FOR UNKNOWN INDICATION
     Dosage: 40 MG, QD
     Route: 065
  13. RENAGEL [Concomitant]
     Active Substance: SEVELAMER HYDROCHLORIDE
     Indication: PRODUCT USED FOR UNKNOWN INDICATION
     Dosage: 800 MG, BID
     Route: 065
  14. SODIUM BICARBONATE. [Concomitant]
     Active Substance: SODIUM BICARBONATE
     Indication: PRODUCT USED FOR UNKNOWN INDICATION
     Dosage: UNK
     Route: 065
  15. CEFTRIAXONE. [Suspect]
     Active Substance: CEFTRIAXONE
     Indication: URINARY TRACT INFECTION
     Dosage: 100 MG, QD
     Route: 042
     Dates: start: 20171020, end: 20171027
  16. VFEND [Suspect]
     Active Substance: VORICONAZOLE
     Indication: BRONCHOPULMONARY ASPERGILLOSIS
     Dosage: 400 MG, BID
     Route: 042
     Dates: start: 20171019, end: 20171024
  17. ZYLORIC [Suspect]
     Active Substance: ALLOPURINOL
     Indication: TUMOUR LYSIS SYNDROME
     Dosage: 200 MG, QD
     Route: 048
     Dates: start: 20171015, end: 20171026
  18. HYDREA [Suspect]
     Active Substance: HYDROXYUREA
     Indication: ACUTE MYELOID LEUKAEMIA
     Dosage: 500 MG, BID
     Route: 048
     Dates: start: 20171013, end: 20171021
  19. TRIMEBUTINE ARROW [Suspect]
     Active Substance: TRIMEBUTINE MALEATE
     Indication: GASTROINTESTINAL DISORDER
     Dosage: 100 MG, BID
     Route: 048
     Dates: start: 20171022, end: 20171025
  20. ZITHROMAX [Suspect]
     Active Substance: AZITHROMYCIN DIHYDRATE
     Dosage: 250 MG, QD
     Route: 048
     Dates: start: 20171018, end: 20171025
  21. VFEND [Suspect]
     Active Substance: VORICONAZOLE
     Dosage: 200 MG, BID
     Route: 065
     Dates: start: 20171025, end: 20171025
  22. STILNOX [Concomitant]
     Active Substance: ZOLPIDEM TARTRATE
     Indication: PRODUCT USED FOR UNKNOWN INDICATION
     Dosage: 10 MG, UNK
     Route: 065
  23. POTASSIUM CHLORIDE. [Concomitant]
     Active Substance: POTASSIUM CHLORIDE
     Indication: PRODUCT USED FOR UNKNOWN INDICATION
     Dosage: UNK
     Route: 065
  24. FASTURTEC [Concomitant]
     Active Substance: RASBURICASE
     Indication: PRODUCT USED FOR UNKNOWN INDICATION
     Dosage: 7.5 MG, UNK
     Route: 042
     Dates: start: 20171014, end: 20171014
  25. ZITHROMAX [Suspect]
     Active Substance: AZITHROMYCIN DIHYDRATE
     Indication: PRODUCT USED FOR UNKNOWN INDICATION
     Dosage: 500 MG, UNK
     Route: 065
     Dates: start: 20171018, end: 20171018
  26. ATARAX [Concomitant]
     Active Substance: HYDROXYZINE HYDROCHLORIDE
     Indication: PRODUCT USED FOR UNKNOWN INDICATION
     Dosage: 12.5 MG, QD
     Route: 065
     Dates: end: 20171025
  27. ICLUSIG [Suspect]
     Active Substance: PONATINIB
     Indication: ACUTE MYELOID LEUKAEMIA
     Dosage: 45 MG, QD
     Route: 048
     Dates: start: 20171017, end: 20171025
  28. POLARAMINE [Suspect]
     Active Substance: DEXCHLORPHENIRAMINE MALEATE
     Indication: ACUTE MYELOID LEUKAEMIA
     Dosage: 5 MG, QD
     Route: 042
     Dates: start: 20171020, end: 20171027

REACTIONS (5)
  - Hepatitis [Fatal]
  - Hepatic failure [Fatal]
  - Off label use [Fatal]
  - Drug interaction [Fatal]
  - Drug level increased [Fatal]

NARRATIVE: CASE EVENT DATE: 20171017
